FAERS Safety Report 4320786-4 (Version None)
Quarter: 2004Q1

REPORT INFORMATION
  Report Type: 
  Country: None (occurrence: None)
  Receive Date: 20040315
  Receipt Date: 20031219
  Transmission Date: 20041129
  Serious: No
  Sender: FDA-Public Use
  Company Number: 2003158074US

PATIENT
  Age: 62 Year
  Sex: Female

DRUGS (3)
  1. BEXTRA [Suspect]
     Indication: INFLAMMATION
     Dosage: 1-2 TAB, QD, ORAL
     Route: 048
     Dates: start: 20021102, end: 20021113
  2. DELTASONE [Suspect]
     Indication: HEADACHE
     Dosage: 20 MG, QD, ORAL; ORAL
     Route: 048
     Dates: start: 20021026, end: 20021108
  3. DELTASONE [Suspect]
     Indication: HEADACHE
     Dosage: 20 MG, QD, ORAL; ORAL
     Route: 048
     Dates: start: 20020101

REACTIONS (10)
  - DIZZINESS [None]
  - DRUG INEFFECTIVE [None]
  - DYSPEPSIA [None]
  - HEPATOCELLULAR DAMAGE [None]
  - MUSCULAR WEAKNESS [None]
  - PALPITATIONS [None]
  - RENAL DISORDER [None]
  - SWELLING [None]
  - VOMITING [None]
  - WEIGHT INCREASED [None]
